FAERS Safety Report 6759554-2 (Version None)
Quarter: 2010Q2

REPORT INFORMATION
  Report Type: 
  Country: None (occurrence: None)
  Receive Date: 20100607
  Receipt Date: 20100524
  Transmission Date: 20101027
  Serious: Yes (Other)
  Sender: FDA-Public Use
  Company Number: JP-BRISTOL-MYERS SQUIBB COMPANY-15134299

PATIENT

DRUGS (2)
  1. AMPHOTERICIN B [Suspect]
     Indication: BRONCHOPULMONARY ASPERGILLOSIS
     Dosage: INJ
     Route: 041
  2. MICAFUNGIN SODIUM [Suspect]
     Indication: BRONCHOPULMONARY ASPERGILLOSIS
     Dosage: 1 DOSAGE FORM = 50-150 MG. AND DOSE WAS INCREASED UP TO 300 MG/DAY
     Route: 041

REACTIONS (7)
  - BLOOD CHLORIDE DECREASED [None]
  - BLOOD SODIUM DECREASED [None]
  - HAEMOLYTIC ANAEMIA [None]
  - INJECTION SITE ERYTHEMA [None]
  - INJECTION SITE WARMTH [None]
  - LYMPHOCYTE COUNT DECREASED [None]
  - PSEUDOMEMBRANOUS COLITIS [None]
